FAERS Safety Report 9378306 (Version 2)
Quarter: 2013Q3

REPORT INFORMATION
  Report Type: Spontaneous
  Country: CH (occurrence: CH)
  Receive Date: 20130701
  Receipt Date: 20130701
  Transmission Date: 20140515
  Serious: Yes (Hospitalization)
  Sender: FDA-Public Use
  Company Number: CH-TEVA-275011ISR

PATIENT
  Age: 47 Year
  Sex: Female
  Weight: 52 kg

DRUGS (7)
  1. G-CSF(FILGRASTIM-MEPHA) [Suspect]
     Indication: NEUTROPENIA
     Dosage: 30 MIU
     Route: 058
     Dates: start: 20110309, end: 20110309
  2. SOLU-MEDROL [Concomitant]
     Route: 042
     Dates: start: 20110224, end: 20110417
  3. NAVOBAN [Concomitant]
     Route: 042
     Dates: start: 20110224, end: 20110417
  4. FARMORUBICIN [Concomitant]
     Route: 042
     Dates: start: 20110224, end: 20110417
  5. FLUOROURACIL [Concomitant]
     Route: 042
     Dates: start: 20110224, end: 20110417
  6. ENDOXAN [Concomitant]
     Dosage: I.V. IN 500 ML NACL
     Dates: start: 20110224, end: 20110417
  7. UROMITEXAN [Concomitant]
     Dates: start: 20110224, end: 20110417

REACTIONS (1)
  - Back pain [Recovered/Resolved]
